FAERS Safety Report 20344263 (Version 1)
Quarter: 2022Q1

REPORT INFORMATION
  Report Type: Other
  Country: DE (occurrence: DE)
  Receive Date: 20220118
  Receipt Date: 20220118
  Transmission Date: 20220423
  Serious: Yes (Death)
  Sender: FDA-Public Use
  Company Number: DE-CELLTRION INC.-2022DE000448

PATIENT

DRUGS (8)
  1. RITUXIMAB [Suspect]
     Active Substance: RITUXIMAB
     Indication: Diffuse large B-cell lymphoma
     Dosage: 375 MG/M2 (SECOND LINE: RITUXIMAB WITH CISPLATIN, CYTARABINE)
     Route: 065
     Dates: start: 20180220
  2. RITUXIMAB [Suspect]
     Active Substance: RITUXIMAB
     Dosage: 1ST LINE, R-CHOP 3 CYCLES
     Route: 065
     Dates: start: 201711, end: 201801
  3. RITUXIMAB [Suspect]
     Active Substance: RITUXIMAB
     Dosage: 375 MG/M2 (FIFTH LINES, RITUXIMAB WITH OXALIPLATIN, GEMCITABINE)
     Route: 065
     Dates: start: 20190206, end: 20190207
  4. GEMCITABINE [Suspect]
     Active Substance: GEMCITABINE
     Indication: Diffuse large B-cell lymphoma
     Dosage: 1000 MG/M2
     Route: 065
     Dates: start: 20190206, end: 20190207
  5. OXALIPLATIN [Suspect]
     Active Substance: OXALIPLATIN
     Indication: Diffuse large B-cell lymphoma
     Dosage: 100 MG/M2 (5TH LINE: RITUXIMAB + GEMCITABINE + OXALIPLATIN)
     Route: 065
     Dates: start: 20190206, end: 20190207
  6. CISPLATIN [Suspect]
     Active Substance: CISPLATIN
     Indication: Diffuse large B-cell lymphoma
     Dosage: 100 MG/M2 (SECOND LINE, 3 CYCLES, RITUXIMAB, CYTARABINE)
     Route: 065
     Dates: start: 20180220
  7. CYTARABINE [Suspect]
     Active Substance: CYTARABINE
     Indication: Diffuse large B-cell lymphoma
     Dosage: 600 MG/M2 (1ST LINE, 3 CYCLE, RITUXIMAB, CISPLATIN)
     Route: 065
     Dates: start: 20180220
  8. CYCLOPHOSPHAMIDE\DOXORUBICIN\PREDNISONE\VINCRISTINE [Suspect]
     Active Substance: CYCLOPHOSPHAMIDE\DOXORUBICIN\PREDNISONE\VINCRISTINE
     Indication: Diffuse large B-cell lymphoma
     Dosage: UNK (1ST LINE, R-CHOP 3 CYCLES, DOSING UNKNOWN)
     Route: 065
     Dates: start: 201711, end: 201801

REACTIONS (4)
  - Death [Fatal]
  - Activated partial thromboplastin time prolonged [Unknown]
  - Bone marrow disorder [Unknown]
  - Gastrointestinal toxicity [Unknown]

NARRATIVE: CASE EVENT DATE: 20190101
